FAERS Safety Report 9596386 (Version 2)
Quarter: 2013Q4

REPORT INFORMATION
  Report Type: Spontaneous
  Country: FR (occurrence: FR)
  Receive Date: 20131004
  Receipt Date: 20131004
  Transmission Date: 20140711
  Serious: Yes (Hospitalization)
  Sender: FDA-Public Use
  Company Number: FR-SA-2013-04856

PATIENT
  Age: 66 Year
  Sex: Male

DRUGS (1)
  1. BCG VACCINE [Suspect]
     Indication: BLADDER CANCER
     Dosage: 6 INSTILLATIONS THEN 6 WEEKS WITHOUT TREATMENT THEN 3 INSTILLATIONS
     Route: 043
     Dates: start: 20120307, end: 20120704

REACTIONS (4)
  - Disseminated tuberculosis [Recovered/Resolved with Sequelae]
  - Pyrexia [Recovered/Resolved]
  - Asthenia [Recovered/Resolved]
  - Hepatic enzyme increased [Recovered/Resolved]
